FAERS Safety Report 5325048-4 (Version None)
Quarter: 2007Q2

REPORT INFORMATION
  Report Type: 
  Country: None (occurrence: None)
  Receive Date: 20070510
  Receipt Date: 20070510
  Transmission Date: 20071010
  Serious: Yes (Hospitalization, Other)
  Sender: FDA-Public Use
  Company Number: None

PATIENT
  Age: 39 Year
  Sex: Female
  Weight: 68.0396 kg

DRUGS (2)
  1. TRILEPTAL [Suspect]
     Indication: EPILEPSY
     Dosage: 600MG TWICE DAILY
     Dates: start: 20030926, end: 20070418
  2. TRILEPTAL [Suspect]

REACTIONS (10)
  - ADRENAL DISORDER [None]
  - BRADYCARDIA [None]
  - CONVULSION [None]
  - ELECTROCARDIOGRAM ABNORMAL [None]
  - FEELING ABNORMAL [None]
  - HYPONATRAEMIA [None]
  - PALPITATIONS [None]
  - RENAL DISORDER [None]
  - TACHYCARDIA [None]
  - TREMOR [None]
